FAERS Safety Report 8891125 (Version 1)
Quarter: 2012Q4

REPORT INFORMATION
  Report Type: 
  Country: BR (occurrence: BR)
  Receive Date: 20121107
  Receipt Date: 20121107
  Transmission Date: 20130627
  Serious: Yes (Other)
  Sender: FDA-Public Use
  Company Number: BR-ROCHE-1103201

PATIENT
  Sex: Male
  Weight: 83 kg

DRUGS (4)
  1. INTERFERON ALFA-2A [Suspect]
     Indication: HEPATITIS C
     Route: 065
     Dates: start: 201102, end: 201201
  2. MEPRAZOL [Concomitant]
     Indication: ULCER
     Route: 065
  3. COLCHICINE [Concomitant]
  4. RIBAVIRIN [Concomitant]
     Route: 065

REACTIONS (8)
  - Hepatic cirrhosis [Recovered/Resolved]
  - Hepatitis C [Unknown]
  - Malaise [Recovered/Resolved]
  - Fatigue [Recovered/Resolved]
  - Nausea [Recovered/Resolved]
  - Asthenia [Recovered/Resolved]
  - Somnolence [Recovered/Resolved]
  - Alopecia [Recovered/Resolved]
